FAERS Safety Report 12195274 (Version 2)
Quarter: 2016Q2

REPORT INFORMATION
  Report Type: Report from Study
  Country: US (occurrence: US)
  Receive Date: 20160321
  Receipt Date: 20160516
  Transmission Date: 20160815
  Serious: No
  Sender: FDA-Public Use
  Company Number: US-OTSUKA-2015_016800

PATIENT
  Age: 37 Year
  Sex: Female
  Weight: 67.6 kg

DRUGS (30)
  1. BLINDED *PLACEBO [Suspect]
     Active Substance: INVESTIGATIONAL PRODUCT
     Dosage: 30 MG, QD (IN EVENING)
     Route: 048
     Dates: start: 20150905, end: 20151109
  2. BLINDED TOLVAPTAN [Suspect]
     Active Substance: TOLVAPTAN
     Dosage: 30 MG, QD (IN EVENING)
     Route: 048
     Dates: start: 20150905, end: 20151109
  3. BLINDED TOLVAPTAN [Suspect]
     Active Substance: TOLVAPTAN
     Dosage: 30 MG, QD (IN MORNING)
     Route: 048
     Dates: start: 20150825, end: 20150827
  4. BLINDED *PLACEBO [Suspect]
     Active Substance: INVESTIGATIONAL PRODUCT
     Dosage: 15 MG, QD (IN EVENING)
     Route: 048
     Dates: start: 20150825, end: 20150827
  5. BLINDED TOLVAPTAN [Suspect]
     Active Substance: TOLVAPTAN
     Dosage: 45 MG, QD (IN MORNING)
     Route: 048
     Dates: start: 20150828, end: 20150831
  6. BLINDED TOLVAPTAN [Suspect]
     Active Substance: TOLVAPTAN
     Dosage: 15 MG, QD (IN EVENING)
     Route: 048
     Dates: start: 20150828, end: 20150831
  7. BLINDED TOLVAPTAN [Suspect]
     Active Substance: TOLVAPTAN
     Dosage: PLACEBO, QD (IN EVENING)
     Route: 048
     Dates: start: 20150818, end: 20150824
  8. BLINDED TOLVAPTAN [Suspect]
     Active Substance: TOLVAPTAN
     Dosage: 60 MG, QD (IN MORNING)
     Route: 048
     Dates: start: 20150901, end: 20150904
  9. BLINDED *PLACEBO [Suspect]
     Active Substance: INVESTIGATIONAL PRODUCT
     Dosage: 30 MG, QD (IN EVENING)
     Route: 048
     Dates: start: 20150901, end: 20150904
  10. LISINOPRIL. [Concomitant]
     Active Substance: LISINOPRIL
     Indication: HYPERTENSION
     Dosage: 40 MG, QD
     Route: 048
     Dates: start: 20150113
  11. EPIPEN [Concomitant]
     Active Substance: EPINEPHRINE
     Indication: ALLERGY TO ARTHROPOD BITE
     Dosage: 0.3 MG, PRN
     Route: 030
     Dates: start: 2011
  12. BLINDED TOLVAPTAN [Suspect]
     Active Substance: TOLVAPTAN
     Dosage: PLACEBO, QD (IN MORNING)
     Route: 048
     Dates: start: 20150818, end: 20150824
  13. BLINDED TOLVAPTAN [Suspect]
     Active Substance: TOLVAPTAN
     Dosage: 15 MG, QD (IN EVENING)
     Route: 048
     Dates: start: 20150825, end: 20150827
  14. POTASSIUM [Concomitant]
     Active Substance: POTASSIUM
     Indication: HYPOKALAEMIA
     Dosage: 40 MEQ, QD
     Route: 048
     Dates: start: 201308
  15. BLINDED *PLACEBO [Suspect]
     Active Substance: INVESTIGATIONAL PRODUCT
     Dosage: PLACEBO, QD (IN MORNING)
     Route: 048
     Dates: start: 20150818, end: 20150824
  16. BLINDED *PLACEBO [Suspect]
     Active Substance: INVESTIGATIONAL PRODUCT
     Dosage: PLACEBO, QD (IN EVENING)
     Route: 048
     Dates: start: 20150818, end: 20150824
  17. BLINDED *PLACEBO [Suspect]
     Active Substance: INVESTIGATIONAL PRODUCT
     Dosage: 30 MG, QD (IN MORNING)
     Route: 048
     Dates: start: 20150825, end: 20150827
  18. BLINDED *PLACEBO [Suspect]
     Active Substance: INVESTIGATIONAL PRODUCT
     Dosage: 45 MG, QD (IN MORNING)
     Route: 048
     Dates: start: 20150828, end: 20150831
  19. BLINDED TOLVAPTAN [Suspect]
     Active Substance: TOLVAPTAN
     Dosage: 30 MG, QD (IN EVENING)
     Route: 048
     Dates: start: 20150901, end: 20150904
  20. MORPHINE [Concomitant]
     Active Substance: MORPHINE
     Indication: RENAL PAIN
     Dosage: 30 MG, PRN
     Route: 048
     Dates: start: 2011
  21. VITAMIN B12 [Concomitant]
     Active Substance: CYANOCOBALAMIN
     Indication: ROUTINE HEALTH MAINTENANCE
     Dosage: 500 ?G, QD
     Route: 048
     Dates: start: 20150930
  22. BLINDED TOLVAPTAN [Suspect]
     Active Substance: TOLVAPTAN
     Indication: CONGENITAL CYSTIC KIDNEY DISEASE
     Dosage: 90 MG, QD (IN MORNING)
     Route: 048
     Dates: start: 20150905, end: 20151109
  23. BLINDED *PLACEBO [Suspect]
     Active Substance: INVESTIGATIONAL PRODUCT
     Dosage: 60 MG, QD (IN MORNING)
     Route: 048
     Dates: start: 20150901, end: 20150904
  24. PROMETHAZINE [Concomitant]
     Active Substance: PROMETHAZINE\PROMETHAZINE HYDROCHLORIDE
     Indication: NAUSEA
     Dosage: 25 MG, PRN
     Route: 048
     Dates: start: 2012
  25. BLINDED *PLACEBO [Suspect]
     Active Substance: INVESTIGATIONAL PRODUCT
     Dosage: 15 MG, QD (IN EVENING)
     Route: 048
     Dates: start: 20150828, end: 20150831
  26. OXYBUTNIN [Concomitant]
     Indication: BLADDER DISCOMFORT
     Dosage: 2.5 MG, PRN
     Route: 048
     Dates: start: 20141010
  27. NIFEDIPINE. [Concomitant]
     Active Substance: NIFEDIPINE
     Indication: HYPERTENSION
     Dosage: 30 MG, QD
     Route: 048
     Dates: start: 20150930
  28. BLINDED *PLACEBO [Suspect]
     Active Substance: INVESTIGATIONAL PRODUCT
     Indication: CONGENITAL CYSTIC KIDNEY DISEASE
     Dosage: 90 MG, QD (IN MORNING)
     Route: 048
     Dates: start: 20150905, end: 20151109
  29. LORAZEPAM. [Concomitant]
     Active Substance: LORAZEPAM
     Indication: ANXIETY
     Dosage: 1 MG, PRN
     Route: 048
     Dates: start: 2010
  30. TAMSULOSIN [Concomitant]
     Active Substance: TAMSULOSIN
     Indication: BLADDER DISCOMFORT
     Dosage: 0.4 MG, BID
     Route: 048
     Dates: start: 2013

REACTIONS (2)
  - Pruritus [Recovered/Resolved]
  - Polyuria [Recovered/Resolved]

NARRATIVE: CASE EVENT DATE: 20151211
